FAERS Safety Report 4738147-2 (Version None)
Quarter: 2005Q3

REPORT INFORMATION
  Report Type: 
  Country: None (occurrence: None)
  Receive Date: 20050805
  Receipt Date: 20050805
  Transmission Date: 20060218
  Serious: Yes (Hospitalization)
  Sender: FDA-Public Use
  Company Number: None

PATIENT
  Age: 67 Year
  Sex: Male
  Weight: 73.7095 kg

DRUGS (1)
  1. OXANDRIN [Suspect]
     Indication: WEIGHT CONTROL
     Dosage: 10 MG BID X 12 WEEKS
     Dates: start: 20050602

REACTIONS (8)
  - ABDOMINAL PAIN [None]
  - DECREASED APPETITE [None]
  - EPIGASTRIC DISCOMFORT [None]
  - FACIAL WASTING [None]
  - LOBAR PNEUMONIA [None]
  - NAUSEA [None]
  - PLEURAL EFFUSION [None]
  - VOMITING [None]
